FAERS Safety Report 11962602 (Version 1)
Quarter: 2016Q1

REPORT INFORMATION
  Report Type: Report from Study
  Country: US (occurrence: US)
  Receive Date: 20160126
  Receipt Date: 20160126
  Transmission Date: 20160526
  Serious: No
  Sender: FDA-Public Use
  Company Number: US-ABBVIE-15K-163-1383008-00

PATIENT
  Age: 21 Year
  Sex: Female

DRUGS (2)
  1. HUMIRA [Suspect]
     Active Substance: ADALIMUMAB
     Route: 065
     Dates: start: 201412
  2. HUMIRA [Suspect]
     Active Substance: ADALIMUMAB
     Indication: CROHN^S DISEASE
     Route: 065
     Dates: start: 201410, end: 201412

REACTIONS (6)
  - Feeling abnormal [Not Recovered/Not Resolved]
  - Wrong technique in product usage process [Not Recovered/Not Resolved]
  - Drug dose omission [Not Recovered/Not Resolved]
  - Incorrect product storage [Not Recovered/Not Resolved]
  - Injection site bruising [Not Recovered/Not Resolved]
  - Drug effect decreased [Unknown]

NARRATIVE: CASE EVENT DATE: 20150428
